FAERS Safety Report 8077130-9 (Version None)
Quarter: 2012Q1

REPORT INFORMATION
  Report Type: 
  Country: None (occurrence: None)
  Receive Date: 20120127
  Receipt Date: 20120124
  Transmission Date: 20120608
  Serious: Yes (Hospitalization)
  Sender: FDA-Public Use
  Company Number: PHHO2011FR021809

PATIENT
  Sex: Female
  Weight: 60 kg

DRUGS (5)
  1. LEVOTHYROXINE SODIUM [Concomitant]
     Indication: HYPOTHYROIDISM
     Dosage: 100 MG, QD
     Route: 048
     Dates: end: 20111229
  2. VALSARTAN [Concomitant]
     Indication: HYPERTENSION
     Dosage: 20 MG, QD
     Route: 050
  3. LEVOTHYROXINE SODIUM [Concomitant]
     Dosage: 1125 MG, QD
     Route: 048
     Dates: start: 20120104
  4. FTY [Suspect]
     Indication: RELAPSING-REMITTING MULTIPLE SCLEROSIS
     Dosage: 0.5 MG, UNK
     Route: 048
     Dates: start: 20111130, end: 20111229
  5. FTY [Suspect]
     Dosage: 0.5 MG, UNK
     Route: 048
     Dates: start: 20120102

REACTIONS (3)
  - LOSS OF CONSCIOUSNESS [None]
  - URINE ABNORMALITY [None]
  - TONGUE BITING [None]
